FAERS Safety Report 15248139 (Version 3)
Quarter: 2019Q1

REPORT INFORMATION
  Report Type: Spontaneous
  Country: US (occurrence: US)
  Receive Date: 20180807
  Receipt Date: 20190322
  Transmission Date: 20190417
  Serious: No
  Sender: FDA-Public Use
  Company Number: US-ASTRAZENECA-2018SE95549

PATIENT
  Sex: Male
  Weight: 94.3 kg

DRUGS (2)
  1. BYDUREON [Suspect]
     Active Substance: EXENATIDE
     Route: 065
  2. BYDUREON BCISE [Suspect]
     Active Substance: EXENATIDE
     Indication: TYPE 2 DIABETES MELLITUS
     Route: 058
     Dates: start: 20180615

REACTIONS (6)
  - Blood glucose increased [Unknown]
  - Device leakage [Unknown]
  - Weight decreased [Unknown]
  - Injection site pruritus [Unknown]
  - Wrong technique in device usage process [Unknown]
  - Injection site nodule [Unknown]
